FAERS Safety Report 6177386-3 (Version None)
Quarter: 2009Q2

REPORT INFORMATION
  Report Type: 
  Country: None (occurrence: None)
  Receive Date: 20090501
  Receipt Date: 20090501
  Transmission Date: 20091009
  Serious: No
  Sender: FDA-Public Use
  Company Number: None

PATIENT
  Sex: Female
  Weight: 83.64 kg

DRUGS (9)
  1. FLUDARABINE PHOSPHATE [Suspect]
     Dosage: 165 MG
     Dates: end: 20090227
  2. ATIVAN [Concomitant]
  3. B-12 COMPLEX [Concomitant]
  4. COLACE [Concomitant]
  5. LISINOPRIL [Concomitant]
  6. PROCHLORPERAZINE MALEATE [Concomitant]
  7. SENNA [Concomitant]
  8. VALCYTE [Concomitant]
  9. VITAMIN D [Concomitant]

REACTIONS (1)
  - LYMPHOPENIA [None]
